FAERS Safety Report 9870923 (Version 1)
Quarter: 2014Q1

REPORT INFORMATION
  Report Type: Spontaneous
  Country: US (occurrence: None)
  Receive Date: 20140204
  Receipt Date: 20140204
  Transmission Date: 20141002
  Serious: Yes (Other)
  Sender: FDA-Public Use
  Company Number: None

PATIENT
  Sex: Female

DRUGS (1)
  1. ENBREL SURECLICK [Suspect]
     Indication: PSORIASIS
     Route: 058
     Dates: start: 20110205

REACTIONS (1)
  - Hypoaesthesia [None]
